FAERS Safety Report 10506923 (Version 1)
Quarter: 2014Q4

REPORT INFORMATION
  Report Type: Spontaneous
  Country: US (occurrence: None)
  Receive Date: 20141007
  Receipt Date: 20141007
  Transmission Date: 20150528
  Serious: Yes (Other)
  Sender: FDA-Public Use
  Company Number: MIN-00991

PATIENT
  Age: 18 Year
  Sex: Female

DRUGS (4)
  1. UNDISCLOSED CONTRACEPTIVE PILLS [Concomitant]
  2. MINOCYCLINE HYDROCHLORIDE. [Suspect]
     Active Substance: MINOCYCLINE HYDROCHLORIDE
     Indication: ACNE
     Dosage: 25 MONTHS PRIOR TO SYMPTOMS
     Route: 048
  3. IRON SUPPLEMENTS [Concomitant]
     Active Substance: IRON
  4. RANITIDINE HYDORCHLORIDE [Concomitant]

REACTIONS (8)
  - Joint stiffness [None]
  - Myalgia [None]
  - Paraesthesia [None]
  - Joint swelling [None]
  - Polyarteritis nodosa [None]
  - Arthralgia [None]
  - Synovitis [None]
  - Livedo reticularis [None]

NARRATIVE: CASE EVENT DATE: 201403
